FAERS Safety Report 7346971-5 (Version None)
Quarter: 2011Q1

REPORT INFORMATION
  Report Type: 
  Country: None (occurrence: None)
  Receive Date: 20110311
  Receipt Date: 20110225
  Transmission Date: 20110831
  Serious: Yes (Hospitalization)
  Sender: FDA-Public Use
  Company Number: PHHY2011AR16025

PATIENT
  Sex: Female

DRUGS (1)
  1. DIOVAN HCT [Suspect]
     Indication: BLOOD PRESSURE
     Dosage: 160/25 MG (1 TABLET DAILY)
     Dates: start: 20050101

REACTIONS (3)
  - FALL [None]
  - BLOOD PRESSURE DECREASED [None]
  - ASTHENIA [None]
